FAERS Safety Report 8926874 (Version 1)
Quarter: 2012Q4

REPORT INFORMATION
  Report Type: 
  Country: US (occurrence: US)
  Receive Date: 20121127
  Receipt Date: 20121127
  Transmission Date: 20130627
  Serious: Yes (Other)
  Sender: FDA-Public Use
  Company Number: US-BAYER-2012-121503

PATIENT
  Age: 83 Year
  Sex: Female
  Weight: 86.17 kg

DRUGS (9)
  1. BAYER GENUINE ASPIRIN ORIGINAL STRENGTH [Suspect]
     Indication: MYOCARDIAL INFARCT PROPHYLAXIS
     Dosage: 1 DF, QD
     Route: 048
     Dates: start: 2010, end: 2011
  2. DIGITALIS [Concomitant]
  3. MULTIVITAMINS [Concomitant]
  4. VITAMIN D [Concomitant]
  5. OMEGA 3 FISH OIL [Concomitant]
  6. CALCIUM [Concomitant]
  7. NIACIN [Concomitant]
  8. BIOTIN [Concomitant]
  9. CO Q10 [Concomitant]

REACTIONS (1)
  - Epistaxis [Recovered/Resolved]
